FAERS Safety Report 4728485-1 (Version None)
Quarter: 2005Q3

REPORT INFORMATION
  Report Type: 
  Country: None (occurrence: None)
  Receive Date: 20050729
  Receipt Date: 20040831
  Transmission Date: 20060218
  Serious: Yes (Other)
  Sender: FDA-Public Use
  Company Number: 2040801346

PATIENT
  Age: 61 Year
  Sex: Female

DRUGS (11)
  1. ZANTAC [Suspect]
     Indication: DRUG USE FOR UNKNOWN INDICATION
     Route: 065
  2. PROCRIT [Concomitant]
     Dosage: 40000IU TWO TIMES PER WEEK
     Route: 058
     Dates: start: 20040324
  3. CETIRIZINE HCL [Concomitant]
  4. RHINOCORT [Concomitant]
     Route: 045
  5. VELCADE [Concomitant]
  6. DOXIL [Concomitant]
  7. THALIDOMIDE [Concomitant]
  8. CISPLATIN [Concomitant]
  9. CYTOXAN [Concomitant]
  10. MELPHALAN [Concomitant]
     Indication: CHEMOTHERAPY
     Dates: start: 20040718
  11. ADRIAMYCIN PFS [Concomitant]

REACTIONS (6)
  - ARTHRALGIA [None]
  - FATIGUE [None]
  - HAEMOGLOBIN DECREASED [None]
  - LEUKOPENIA [None]
  - PLATELET COUNT DECREASED [None]
  - RED BLOOD CELL COUNT DECREASED [None]
